FAERS Safety Report 7998321-9 (Version None)
Quarter: 2011Q4

REPORT INFORMATION
  Report Type: 
  Country: None (occurrence: None)
  Receive Date: 20111221
  Receipt Date: 20110707
  Transmission Date: 20120403
  Serious: No
  Sender: FDA-Public Use
  Company Number: US-GLAXOSMITHKLINE-A0935345A

PATIENT
  Age: 77 Year
  Sex: Male

DRUGS (4)
  1. GLIPIZIDE [Concomitant]
  2. LOVAZA [Suspect]
     Indication: BLOOD CHOLESTEROL INCREASED
     Dosage: 4CAP PER DAY
     Route: 048
     Dates: start: 20110617, end: 20110621
  3. LISINOPRIL [Concomitant]
  4. VITAMIN D [Concomitant]

REACTIONS (2)
  - ABDOMINAL PAIN UPPER [None]
  - NOCTURIA [None]
